FAERS Safety Report 8025819-X (Version None)
Quarter: 2012Q1

REPORT INFORMATION
  Report Type: 
  Country: None (occurrence: None)
  Receive Date: 20120105
  Receipt Date: 20110324
  Transmission Date: 20120608
  Serious: No
  Sender: FDA-Public Use
  Company Number: US-ABBOTT-11P-163-0714925-00

PATIENT
  Sex: Female
  Weight: 122.58 kg

DRUGS (6)
  1. SYNTHROID [Suspect]
     Indication: PRODUCT USED FOR UNKNOWN INDICATION
     Dates: start: 20100301
  2. NAPROXEN [Concomitant]
     Indication: PRODUCT USED FOR UNKNOWN INDICATION
  3. IRON [Concomitant]
     Indication: PRODUCT USED FOR UNKNOWN INDICATION
  4. LEXAPRO [Concomitant]
     Indication: PRODUCT USED FOR UNKNOWN INDICATION
  5. LEVOTHYROXINE SODIUM [Suspect]
     Indication: PRODUCT USED FOR UNKNOWN INDICATION
     Dates: start: 20080601, end: 20100301
  6. SYNTHROID [Suspect]
     Dates: start: 20080401, end: 20080601

REACTIONS (8)
  - FATIGUE [None]
  - VISION BLURRED [None]
  - WEIGHT INCREASED [None]
  - PAIN [None]
  - DYSARTHRIA [None]
  - COGNITIVE DISORDER [None]
  - MEMORY IMPAIRMENT [None]
  - GAIT DISTURBANCE [None]
